FAERS Safety Report 23672605 (Version 1)
Quarter: 2024Q1

REPORT INFORMATION
  Report Type: Spontaneous
  Country: US (occurrence: None)
  Receive Date: 20240325
  Receipt Date: 20240325
  Transmission Date: 20240410
  Serious: Yes (Hospitalization)
  Sender: FDA-Public Use
  Company Number: None

PATIENT
  Age: 67 Year
  Sex: Male
  Weight: 102.51 kg

DRUGS (3)
  1. DUVELISIB [Suspect]
     Active Substance: DUVELISIB
     Indication: Diffuse large B-cell lymphoma
     Dosage: FREQUENCY : TWICE A DAY;?
     Route: 048
     Dates: start: 20230929, end: 20231012
  2. KYMRIAH [Concomitant]
  3. EPCORITAMAB [Concomitant]

REACTIONS (6)
  - Therapy partial responder [None]
  - Back pain [None]
  - Lymphadenopathy [None]
  - Malignant neoplasm progression [None]
  - Neck pain [None]
  - Headache [None]

NARRATIVE: CASE EVENT DATE: 20240320
